FAERS Safety Report 14160111 (Version 1)
Quarter: 2017Q4

REPORT INFORMATION
  Report Type: Spontaneous
  Country: US (occurrence: US)
  Receive Date: 20171103
  Receipt Date: 20171103
  Transmission Date: 20180321
  Serious: Yes (Other)
  Sender: FDA-Public Use
  Company Number: US-TEIKOKU PHARMA USA-TPU2017-00689

PATIENT
  Sex: Female
  Weight: 61.29 kg

DRUGS (3)
  1. BACK INJECTIONS [Concomitant]
  2. LIDODERM [Suspect]
     Active Substance: LIDOCAINE
     Route: 061
  3. LIDODERM [Suspect]
     Active Substance: LIDOCAINE
     Indication: BACK PAIN
     Route: 061
     Dates: start: 2000

REACTIONS (5)
  - Spinal operation [Recovered/Resolved]
  - Asthenia [Unknown]
  - Diabetes mellitus [Unknown]
  - Drug dose omission [Not Recovered/Not Resolved]
  - Gait disturbance [Unknown]

NARRATIVE: CASE EVENT DATE: 2004
